FAERS Safety Report 6081366-6 (Version None)
Quarter: 2009Q1

REPORT INFORMATION
  Report Type: 
  Country: None (occurrence: None)
  Receive Date: 20090218
  Receipt Date: 20090210
  Transmission Date: 20090719
  Serious: Yes (Hospitalization)
  Sender: FDA-Public Use
  Company Number: US-JNJFOC-20090203279

PATIENT
  Age: 17 Year
  Sex: Male
  Weight: 144.24 kg

DRUGS (6)
  1. RISPERDAL [Suspect]
     Indication: BIPOLAR DISORDER
     Route: 048
  2. AZATHIOPRINE [Suspect]
     Indication: CROHN'S DISEASE
     Route: 048
  3. PROTONIX [Concomitant]
     Indication: GASTRITIS
     Route: 048
  4. LUNESTA [Concomitant]
     Indication: SLEEP DISORDER
     Route: 048
  5. BENADRYL [Concomitant]
     Indication: SLEEP DISORDER
     Route: 048
  6. PERCOCET [Concomitant]
     Indication: PAIN
     Dosage: 7.5/325 MG

REACTIONS (3)
  - ABDOMINAL PAIN [None]
  - PANCREATITIS [None]
  - SUICIDE ATTEMPT [None]
